FAERS Safety Report 23085172 (Version 1)
Quarter: 2023Q4

REPORT INFORMATION
  Report Type: Spontaneous
  Country: US (occurrence: None)
  Receive Date: 20231019
  Receipt Date: 20231019
  Transmission Date: 20240110
  Serious: No
  Sender: FDA-Public Use
  Company Number: None

PATIENT
  Age: 79 Year
  Sex: Male
  Weight: 96.75 kg

DRUGS (1)
  1. MIGRAINE RELIEF [Suspect]
     Active Substance: CURCUMA AROMATICA ROOT\FEVERFEW\GINGER\INDIAN FRANKINCENSE\TURMERIC
     Indication: Migraine
     Dates: start: 20230810, end: 20231018

REACTIONS (2)
  - Product contamination physical [None]
  - Product formulation issue [None]

NARRATIVE: CASE EVENT DATE: 20231018
